FAERS Safety Report 8734917 (Version 2)
Quarter: 2012Q4

REPORT INFORMATION
  Report Type: Spontaneous
  Country: US (occurrence: None)
  Receive Date: 20120803
  Receipt Date: 20120824
  Transmission Date: 20130627
  Serious: Yes (Hospitalization)
  Sender: FDA-Public Use
  Company Number: UTC-021320

PATIENT
  Age: 68 Year
  Sex: Female
  Weight: 77.2 kg

DRUGS (2)
  1. REMODULIN [Suspect]
     Indication: PULMONARY HYPERTENSION
     Dosage: 102.24 UG/KG (0.071 UG/KG,1 IN 1 MIN),SUBCUTANEOUS
     Route: 058
     Dates: start: 20070709
  2. COUMADIN [Concomitant]

REACTIONS (2)
  - Asthenia [None]
  - Cellulitis [None]
